FAERS Safety Report 7240119-3 (Version None)
Quarter: 2011Q1

REPORT INFORMATION
  Report Type: 
  Country: None (occurrence: None)
  Receive Date: 20110113
  Receipt Date: 20110104
  Transmission Date: 20110831
  Serious: Yes (Death, Hospitalization)
  Sender: FDA-Public Use
  Company Number: 2011010001

PATIENT
  Age: 49 Year
  Sex: Female

DRUGS (12)
  1. VALIUM [Suspect]
     Dates: end: 20101127
  2. SOMA [Suspect]
     Indication: MIGRAINE
     Dosage: 1000 MG 9250 MG, 4 IN 1 D), ORAL
     Route: 048
     Dates: end: 20101127
  3. SOMA [Suspect]
     Indication: BACK PAIN
     Dosage: 1000 MG 9250 MG, 4 IN 1 D), ORAL
     Route: 048
     Dates: end: 20101127
  4. FENTANYL [Suspect]
     Indication: BACK PAIN
     Dosage: TRANSDERMAL
     Route: 062
     Dates: end: 20101127
  5. FENTANYL [Suspect]
     Indication: MIGRAINE
     Dosage: TRANSDERMAL
     Route: 062
     Dates: end: 20101127
  6. PERCOCET [Suspect]
     Indication: BACK PAIN
     Dosage: 5/325 MG, ORAL
     Route: 048
     Dates: end: 20101127
  7. PERCOCET [Suspect]
     Indication: MIGRAINE
     Dosage: 5/325 MG, ORAL
     Route: 048
     Dates: end: 20101127
  8. LEXAPRO [Suspect]
     Indication: DEPRESSION
     Dosage: 20 MG (20 MG, 1 IN 1 D), ORAL
     Route: 048
     Dates: start: 20100604, end: 20101127
  9. FENTORA [Suspect]
     Indication: BACK PAIN
     Dosage: 400 MG (400 MG, 1 IN 1 D)
     Dates: end: 20101127
  10. FENTORA [Suspect]
     Indication: MIGRAINE
     Dosage: 400 MG (400 MG, 1 IN 1 D)
     Dates: end: 20101127
  11. ZIPSOR [Suspect]
     Indication: MIGRAINE
     Dosage: (25 MG) , ORAL
     Route: 048
     Dates: end: 20101127
  12. ZIPSOR [Suspect]
     Indication: BACK PAIN
     Dosage: (25 MG) , ORAL
     Route: 048
     Dates: end: 20101127

REACTIONS (5)
  - CHEST PAIN [None]
  - LOSS OF CONSCIOUSNESS [None]
  - INCORRECT ROUTE OF DRUG ADMINISTRATION [None]
  - CEREBROVASCULAR ACCIDENT [None]
  - INTENTIONAL DRUG MISUSE [None]
